FAERS Safety Report 7455877-2 (Version None)
Quarter: 2011Q2

REPORT INFORMATION
  Report Type: 
  Country: None (occurrence: None)
  Receive Date: 20110503
  Receipt Date: 20110427
  Transmission Date: 20111010
  Serious: Yes (Death, Hospitalization)
  Sender: FDA-Public Use
  Company Number: A0924765A

PATIENT
  Age: 72 Year
  Sex: Female

DRUGS (4)
  1. CONCURRENT MEDICATIONS [Concomitant]
  2. INSULIN [Concomitant]
  3. ADVAIR DISKUS 100/50 [Suspect]
     Indication: ASTHMA
     Dosage: 1PUFF TWICE PER DAY
     Route: 055
     Dates: start: 20101001, end: 20110218
  4. VENTOLIN HFA [Concomitant]

REACTIONS (6)
  - BLOOD PRESSURE DECREASED [None]
  - RESPIRATORY FAILURE [None]
  - COLLAPSE OF LUNG [None]
  - DYSPNOEA [None]
  - LUNG INFECTION [None]
  - DRUG INEFFECTIVE [None]
